FAERS Safety Report 9958716 (Version 1)
Quarter: 2014Q1

REPORT INFORMATION
  Report Type: Spontaneous
  Country: IN (occurrence: None)
  Receive Date: 20140228
  Receipt Date: 20140228
  Transmission Date: 20141002
  Serious: Yes (Other)
  Sender: FDA-Public Use
  Company Number: FK201400560

PATIENT
  Sex: Male
  Weight: 2.01 kg

DRUGS (7)
  1. METHYLPREDNISOLONE [Suspect]
     Indication: IMMUNE THROMBOCYTOPENIC PURPURA
     Dosage: 100 MG, TRANSPLACENTAL EXPOSURE, TRANSPLACENTAL
     Route: 064
  2. PREDNISOLONE [Suspect]
     Indication: IMMUNE THROMBOCYTOPENIC PURPURA
     Route: 064
  3. IMMUNE GLOBULIN [Suspect]
     Indication: THROMBOCYTOPENIA
     Route: 064
  4. OXYTOCIN [Suspect]
     Indication: LABOUR INDUCTION
     Route: 064
  5. TRIPLE VACCINATION [Suspect]
     Indication: IMMUNISATION
     Route: 064
  6. ANESTHESIA [Suspect]
     Indication: SPLENECTOMY
     Route: 064
  7. INSULIN [Suspect]
     Indication: GESTATIONAL DIABETES
     Route: 064

REACTIONS (3)
  - Thrombocytopenia neonatal [None]
  - Maternal drugs affecting foetus [None]
  - Premature baby [None]
